FAERS Safety Report 4511858-X (Version None)
Quarter: 2004Q4

REPORT INFORMATION
  Report Type: 
  Country: None (occurrence: None)
  Receive Date: 20041129
  Receipt Date: 20030605
  Transmission Date: 20050328
  Serious: Yes (Hospitalization)
  Sender: FDA-Public Use
  Company Number: US-MERCK-0306USA00867

PATIENT
  Age: 70 Year
  Sex: Male

DRUGS (3)
  1. VIOXX [Suspect]
     Indication: PAIN
     Route: 048
     Dates: start: 20000628
  2. VIOXX [Suspect]
     Route: 048
     Dates: start: 20000828
  3. VIOXX [Suspect]
     Route: 048
     Dates: end: 20010901

REACTIONS (32)
  - ADVERSE EVENT [None]
  - ANAEMIA POSTOPERATIVE [None]
  - AORTIC VALVE SCLEROSIS [None]
  - BRADYCARDIA [None]
  - CARDIAC FAILURE CONGESTIVE [None]
  - CARDIAC MURMUR [None]
  - CARDIOMEGALY [None]
  - CHRONIC OBSTRUCTIVE AIRWAYS DISEASE [None]
  - CORONARY ARTERY DISEASE [None]
  - DIABETIC RETINOPATHY [None]
  - DIASTOLIC DYSFUNCTION [None]
  - DYSPNOEA EXERTIONAL [None]
  - FACIAL PALSY [None]
  - GOITRE [None]
  - HYPERLIPIDAEMIA [None]
  - HYPERTENSION [None]
  - HYPOXIA [None]
  - INTERSTITIAL LUNG DISEASE [None]
  - ISCHAEMIC CARDIOMYOPATHY [None]
  - LOCALISED OSTEOARTHRITIS [None]
  - MACULAR DEGENERATION [None]
  - NEUROPATHY PERIPHERAL [None]
  - POLYTRAUMATISM [None]
  - PRIMARY HYPOTHYROIDISM [None]
  - PULMONARY HYPERTENSION [None]
  - RESTRICTIVE PULMONARY DISEASE [None]
  - RIGHT VENTRICULAR FAILURE [None]
  - ROTATOR CUFF SYNDROME [None]
  - SKIN CANCER [None]
  - SLEEP APNOEA SYNDROME [None]
  - THYROID NEOPLASM [None]
  - VENTRICULAR HYPERTROPHY [None]
